FAERS Safety Report 20479804 (Version 1)
Quarter: 2022Q1

REPORT INFORMATION
  Report Type: Spontaneous
  Country: US (occurrence: US)
  Receive Date: 20220216
  Receipt Date: 20220216
  Transmission Date: 20220423
  Serious: No
  Sender: FDA-Public Use
  Company Number: US-BAYER-2022A023718

PATIENT
  Age: 50 Year
  Sex: Female

DRUGS (2)
  1. KERENDIA [Suspect]
     Active Substance: FINERENONE
     Dosage: 10 MG
  2. PREDNISONE [Concomitant]
     Active Substance: PREDNISONE
     Dosage: DOSE REDUCED

REACTIONS (3)
  - Hypertension [None]
  - Proteinuria [None]
  - Dizziness [None]
